FAERS Safety Report 7600193-9 (Version None)
Quarter: 2011Q3

REPORT INFORMATION
  Report Type: 
  Country: None (occurrence: None)
  Receive Date: 20110711
  Receipt Date: 20110704
  Transmission Date: 20111222
  Serious: Yes (Death)
  Sender: FDA-Public Use
  Company Number: PHHY2011PE60847

PATIENT
  Sex: Female

DRUGS (1)
  1. DIOVAN HCT [Suspect]
     Dosage: 160 MG VALSARTAN AND 25 MG HYDROCHLOROTHIAZIDE
     Dates: start: 20080103

REACTIONS (1)
  - PULMONARY FIBROSIS [None]
